FAERS Safety Report 6206699-1 (Version None)
Quarter: 2009Q2

REPORT INFORMATION
  Report Type: 
  Country: None (occurrence: None)
  Receive Date: 20090518
  Receipt Date: 20090122
  Transmission Date: 20091009
  Serious: No
  Sender: FDA-Public Use
  Company Number: WAES 0901USA03343

PATIENT
  Age: 68 Year
  Sex: Male

DRUGS (3)
  1. JANUVIA [Suspect]
     Indication: DIABETES MELLITUS
     Dosage: 100 MG/DAILY/PO
     Route: 048
     Dates: start: 20081201
  2. GLIMEPIRIDE [Concomitant]
  3. LISINOPRIL [Concomitant]

REACTIONS (5)
  - HEADACHE [None]
  - NAUSEA [None]
  - PAIN [None]
  - RESPIRATORY DISORDER [None]
  - SOMNOLENCE [None]
